FAERS Safety Report 15989270 (Version 1)
Quarter: 2019Q1

REPORT INFORMATION
  Report Type: Spontaneous
  Country: US (occurrence: US)
  Receive Date: 20190220
  Receipt Date: 20190220
  Transmission Date: 20190418
  Serious: No
  Sender: FDA-Public Use
  Company Number: None

PATIENT
  Age: 71 Year
  Sex: Female

DRUGS (1)
  1. ZEJULA [Suspect]
     Active Substance: NIRAPARIB
     Indication: OVARIAN CANCER
     Route: 048
     Dates: start: 20180201

REACTIONS (6)
  - Malignant neoplasm progression [None]
  - Fatigue [None]
  - Insomnia [None]
  - Intestinal obstruction [None]
  - Gastrointestinal disorder [None]
  - Hernia [None]
